FAERS Safety Report 19487837 (Version 1)
Quarter: 2021Q3

REPORT INFORMATION
  Report Type: Spontaneous
  Country: DE (occurrence: DE)
  Receive Date: 20210702
  Receipt Date: 20210702
  Transmission Date: 20211014
  Serious: Yes (Hospitalization, Other)
  Sender: FDA-Public Use
  Company Number: DE-PFIZER INC-2021751141

PATIENT
  Age: 40 Year
  Sex: Female

DRUGS (3)
  1. LYRICA [Suspect]
     Active Substance: PREGABALIN
     Dosage: 25 MG, 2X/DAY (PRESCRIBED TWICE A DAY)
     Route: 048
  2. LYRICA [Suspect]
     Active Substance: PREGABALIN
     Dosage: 300 MG, 2X/DAY (2 CAPS WERE TAKEN, ONE IN THE EVENING AND ONE IN THE MORNING)
     Route: 048
  3. CITALOPRAM [Concomitant]
     Active Substance: CITALOPRAM HYDROBROMIDE
     Dosage: HOME MEDICATION

REACTIONS (5)
  - Incorrect dose administered [Unknown]
  - Electrocardiogram QT interval abnormal [Unknown]
  - Accidental overdose [Unknown]
  - Dizziness [Unknown]
  - Fatigue [Unknown]
